FAERS Safety Report 19912406 (Version 2)
Quarter: 2021Q4

REPORT INFORMATION
  Report Type: Report from Study
  Country: None (occurrence: US)
  Receive Date: 20211004
  Receipt Date: 20211026
  Transmission Date: 20220303
  Serious: Yes (Other)
  Sender: FDA-Public Use
  Company Number: US-ABBVIE-21K-163-4104474-00

PATIENT
  Age: 83 Year
  Sex: Female

DRUGS (1)
  1. HUMIRA [Suspect]
     Active Substance: ADALIMUMAB
     Indication: Rheumatoid arthritis
     Dosage: CITRATE FREE
     Route: 058
     Dates: start: 20210903

REACTIONS (5)
  - Epidural injection [Unknown]
  - Wrong technique in product usage process [Recovering/Resolving]
  - Injection site erythema [Recovering/Resolving]
  - Immunodeficiency [Unknown]
  - Spinal disorder [Unknown]

NARRATIVE: CASE EVENT DATE: 20210930
